FAERS Safety Report 8373054-8 (Version None)
Quarter: 2012Q2

REPORT INFORMATION
  Report Type: 
  Country: None (occurrence: None)
  Receive Date: 20120521
  Receipt Date: 20120511
  Transmission Date: 20120825
  Serious: Yes (Hospitalization)
  Sender: FDA-Public Use
  Company Number: US-MYLANLABS-2012S1005520

PATIENT
  Age: 39 Year
  Sex: Male

DRUGS (8)
  1. CYCLOBENZAPRINE [Concomitant]
     Route: 048
  2. GABAPENTIN [Concomitant]
     Route: 048
  3. FENTANYL-100 [Suspect]
     Indication: OSTEOARTHRITIS
     Dosage: CHANGED Q60H
     Route: 062
     Dates: start: 20110501, end: 20120309
  4. KLONOPIN [Concomitant]
  5. FENTANYL-100 [Suspect]
     Indication: SPONDYLITIS
     Dosage: CHANGED Q60H
     Route: 062
     Dates: start: 20110501, end: 20120309
  6. FENTANYL-100 [Suspect]
     Indication: PAIN
     Dosage: CHANGED Q60H
     Route: 062
     Dates: start: 20110501, end: 20120309
  7. FENTANYL-100 [Suspect]
     Indication: ARTHRITIS
     Dosage: CHANGED Q60H
     Route: 062
     Dates: start: 20110501, end: 20120309
  8. FENTANYL-100 [Suspect]
     Indication: INTERVERTEBRAL DISC DEGENERATION
     Dosage: CHANGED Q60H
     Route: 062
     Dates: start: 20110501, end: 20120309

REACTIONS (11)
  - PAIN [None]
  - FLATULENCE [None]
  - DEHYDRATION [None]
  - DRUG EFFECT DECREASED [None]
  - DRY MOUTH [None]
  - WEIGHT DECREASED [None]
  - DECREASED APPETITE [None]
  - CONSTIPATION [None]
  - DYSPEPSIA [None]
  - SENSATION OF PRESSURE [None]
  - ABDOMINAL DISCOMFORT [None]
